FAERS Safety Report 7469940-3 (Version None)
Quarter: 2011Q2

REPORT INFORMATION
  Report Type: 
  Country: None (occurrence: None)
  Receive Date: 20110429
  Receipt Date: 20110419
  Transmission Date: 20111010
  Serious: Yes (Other)
  Sender: FDA-Public Use
  Company Number: FK201100766

PATIENT
  Age: 1 Month
  Sex: Female

DRUGS (6)
  1. SEVOFLURANE [Suspect]
     Indication: PRODUCT USED FOR UNKNOWN INDICATION
  2. MEXALEN (PARACETAMOL) (PARACETAMOL) [Concomitant]
  3. THEOSPIREX (THEOPHYLLINE) (THEOPHYLLINE) [Concomitant]
  4. PROPOFOL [Suspect]
     Indication: INDUCTION OF ANAESTHESIA
  5. ULTIVA [Suspect]
     Indication: PRODUCT USED FOR UNKNOWN INDICATION
  6. NAROPIN [Suspect]
     Indication: PRODUCT USED FOR UNKNOWN INDICATION

REACTIONS (3)
  - DEVELOPMENTAL DELAY [None]
  - METABOLIC DISORDER [None]
  - CONVULSION [None]
